FAERS Safety Report 10880536 (Version 1)
Quarter: 2015Q1

REPORT INFORMATION
  Report Type: Spontaneous
  Country: US (occurrence: US)
  Receive Date: 20150303
  Receipt Date: 20150303
  Transmission Date: 20150721
  Serious: Yes (Other)
  Sender: FDA-Public Use
  Company Number: US-AMGEN-USASP2015017520

PATIENT
  Age: 73 Year
  Sex: Female

DRUGS (5)
  1. RESTASIS [Concomitant]
     Active Substance: CYCLOSPORINE
  2. PROPRANOLOL [Concomitant]
     Active Substance: PROPRANOLOL\PROPRANOLOL HYDROCHLORIDE
  3. ALPRAZOLAM. [Concomitant]
     Active Substance: ALPRAZOLAM
  4. HYDROCHLOROTHIAZIDE. [Concomitant]
     Active Substance: HYDROCHLOROTHIAZIDE
  5. PROLIA [Suspect]
     Active Substance: DENOSUMAB
     Indication: OSTEOPOROSIS
     Dosage: UNK
     Route: 065

REACTIONS (8)
  - Cold sweat [Unknown]
  - Chills [Unknown]
  - Hysterectomy [Unknown]
  - Hot flush [Unknown]
  - Burning sensation [Unknown]
  - Skin cancer [Recovered/Resolved]
  - Feeling hot [Unknown]
  - Dry skin [Unknown]
